FAERS Safety Report 5962926-7 (Version None)
Quarter: 2008Q4

REPORT INFORMATION
  Report Type: 
  Country: None (occurrence: None)
  Receive Date: 20081121
  Receipt Date: 20081121
  Transmission Date: 20090506
  Serious: Yes (Other)
  Sender: FDA-Public Use
  Company Number: None

PATIENT
  Sex: Female
  Weight: 76.6579 kg

DRUGS (1)
  1. DOCETAXEL [Suspect]
     Indication: BREAST CANCER
     Dosage: 140MG EVERY 3 WEEKS IV
     Route: 042
     Dates: start: 20081030

REACTIONS (5)
  - ERYTHEMA [None]
  - OEDEMA PERIPHERAL [None]
  - RASH [None]
  - SKIN EXFOLIATION [None]
  - TENDERNESS [None]
